FAERS Safety Report 25307508 (Version 2)
Quarter: 2025Q2

REPORT INFORMATION
  Report Type: Spontaneous
  Country: US (occurrence: US)
  Receive Date: 20250513
  Receipt Date: 20250623
  Transmission Date: 20250717
  Serious: No
  Sender: TRAVERE THERAPEUTICS
  Company Number: US-TRAVERE-2025TVT00601

PATIENT
  Sex: Female

DRUGS (3)
  1. FILSPARI [Suspect]
     Active Substance: SPARSENTAN
     Indication: Product used for unknown indication
     Route: 048
  2. FILSPARI [Suspect]
     Active Substance: SPARSENTAN
     Route: 048
  3. FILSPARI [Suspect]
     Active Substance: SPARSENTAN
     Route: 048

REACTIONS (3)
  - Malaise [Unknown]
  - Fatigue [Unknown]
  - Depression [Unknown]
